FAERS Safety Report 9189469 (Version 2)
Quarter: 2013Q2

REPORT INFORMATION
  Report Type: Spontaneous
  Country: IE (occurrence: IE)
  Receive Date: 20130326
  Receipt Date: 20130425
  Transmission Date: 20140414
  Serious: Yes (Other)
  Sender: FDA-Public Use
  Company Number: PHHY2013IE028623

PATIENT
  Age: 45 Year
  Sex: Female

DRUGS (2)
  1. GILENYA [Suspect]
     Indication: MULTIPLE SCLEROSIS
     Dosage: 0.5 MG, QD
     Route: 048
     Dates: start: 20121001
  2. CO-AMOXICLAV [Concomitant]
     Dosage: 1 DF, TID
     Route: 048

REACTIONS (3)
  - Malaise [Unknown]
  - Pyrexia [Unknown]
  - Headache [Unknown]
